FAERS Safety Report 5113517-1 (Version None)
Quarter: 2006Q3

REPORT INFORMATION
  Report Type: 
  Country: None (occurrence: None)
  Receive Date: 20060920
  Receipt Date: 20060907
  Transmission Date: 20061208
  Serious: Yes (Hospitalization)
  Sender: FDA-Public Use
  Company Number: HQWYE420407SEP06

PATIENT
  Age: 56 Year
  Sex: Male

DRUGS (8)
  1. PANTOPRAZOLE SODIUM [Suspect]
     Indication: GASTRIC PH DECREASED
     Dosage: SEE IMAGE
     Route: 048
  2. PANTOPRAZOLE SODIUM [Suspect]
     Indication: GASTROOESOPHAGEAL REFLUX DISEASE
     Dosage: SEE IMAGE
     Route: 048
  3. PANTOPRAZOLE SODIUM [Suspect]
     Indication: REFLUX OESOPHAGITIS
     Dosage: SEE IMAGE
     Route: 048
  4. DIOVAN HCT [Concomitant]
  5. ALLOPURINOL [Concomitant]
  6. ATENOL (ATENOLOL) [Concomitant]
  7. ATORVASTATIN CALCIUM [Concomitant]
  8. ASPIRIN [Concomitant]

REACTIONS (13)
  - ACUTE RESPIRATORY FAILURE [None]
  - CONDITION AGGRAVATED [None]
  - GASTRIC PH DECREASED [None]
  - GASTROOESOPHAGEAL REFLUX DISEASE [None]
  - IMPAIRED WORK ABILITY [None]
  - NEUROENDOCRINE CARCINOMA [None]
  - PANCREATIC NECROSIS [None]
  - PANCREATITIS HAEMORRHAGIC [None]
  - PERITONITIS [None]
  - PLEURAL EFFUSION [None]
  - POST GASTRIC SURGERY SYNDROME [None]
  - REFLUX OESOPHAGITIS [None]
  - THROMBOCYTHAEMIA [None]
